FAERS Safety Report 17762254 (Version 1)
Quarter: 2020Q2

REPORT INFORMATION
  Report Type: Spontaneous
  Country: US (occurrence: US)
  Receive Date: 20200508
  Receipt Date: 20200508
  Transmission Date: 20200714
  Serious: Yes (Other)
  Sender: FDA-Public Use
  Company Number: US-ARRAY-2020-07916

PATIENT

DRUGS (2)
  1. BRAFTOVI [Suspect]
     Active Substance: ENCORAFENIB
     Indication: BLADDER CANCER
     Dosage: 450 MG, QD
     Route: 048
     Dates: start: 20200320
  2. MEKTOVI [Suspect]
     Active Substance: BINIMETINIB
     Indication: BLADDER CANCER
     Dosage: 45 MG, BID
     Route: 048
     Dates: start: 20200320

REACTIONS (2)
  - Hepatotoxicity [Unknown]
  - Product use in unapproved indication [Unknown]

NARRATIVE: CASE EVENT DATE: 20200320
